FAERS Safety Report 15321823 (Version 2)
Quarter: 2018Q3

REPORT INFORMATION
  Report Type: Spontaneous
  Country: JP (occurrence: JP)
  Receive Date: 20180827
  Receipt Date: 20180907
  Transmission Date: 20181010
  Serious: Yes (Hospitalization, Other)
  Sender: FDA-Public Use
  Company Number: JP-NOVOPROD-613276

PATIENT
  Sex: Male

DRUGS (1)
  1. VICTOZA [Suspect]
     Active Substance: LIRAGLUTIDE
     Indication: TYPE 2 DIABETES MELLITUS
     Dosage: 0.9 MG, QD (AFTER DIALYSIS)
     Route: 058
     Dates: end: 20180706

REACTIONS (4)
  - Intestinal congestion [Unknown]
  - Nausea [Unknown]
  - Hypoglycaemia [Recovered/Resolved]
  - Gastroptosis [Unknown]

NARRATIVE: CASE EVENT DATE: 20180706
